FAERS Safety Report 5193994-0 (Version None)
Quarter: 2006Q4

REPORT INFORMATION
  Report Type: 
  Country: None (occurrence: None)
  Receive Date: 20061228
  Receipt Date: 20060925
  Transmission Date: 20070319
  Serious: No
  Sender: FDA-Public Use
  Company Number: US-GLAXOSMITHKLINE-A0621321A

PATIENT
  Age: 2 Year
  Sex: Male

DRUGS (3)
  1. FLOVENT [Suspect]
     Dosage: 2PUFF TWICE PER DAY
     Route: 055
     Dates: start: 20060920
  2. ZYRTEC [Concomitant]
  3. SINGULAIR [Concomitant]

REACTIONS (1)
  - VOMITING [None]
